FAERS Safety Report 15041353 (Version 2)
Quarter: 2019Q1

REPORT INFORMATION
  Report Type: Spontaneous
  Country: US (occurrence: US)
  Receive Date: 20180621
  Receipt Date: 20190223
  Transmission Date: 20190417
  Serious: Yes (Hospitalization)
  Sender: FDA-Public Use
  Company Number: US-TEVA-2018-US-910792

PATIENT
  Age: 78 Year
  Sex: Female
  Weight: 85.79 kg

DRUGS (4)
  1. ALTACE [Suspect]
     Active Substance: RAMIPRIL
     Indication: DIABETES MELLITUS
  2. ALTACE [Suspect]
     Active Substance: RAMIPRIL
     Indication: DIABETES MELLITUS
     Route: 065
     Dates: start: 1994, end: 1995
  3. RAMIPRIL. [Suspect]
     Active Substance: RAMIPRIL
     Indication: HYPERTENSION
  4. RAMIPRIL LUPIN [Suspect]
     Active Substance: RAMIPRIL
     Route: 065
     Dates: start: 201802

REACTIONS (3)
  - Hypertension [Recovered/Resolved]
  - Drug ineffective [Unknown]
  - Product substitution issue [None]

NARRATIVE: CASE EVENT DATE: 20180613
